FAERS Safety Report 10135881 (Version 1)
Quarter: 2014Q2

REPORT INFORMATION
  Report Type: Report from Study
  Country: DE (occurrence: DE)
  Receive Date: 20140429
  Receipt Date: 20140429
  Transmission Date: 20141212
  Serious: Yes (Hospitalization)
  Sender: FDA-Public Use
  Company Number: DE-ABBVIE-14K-062-1229951-00

PATIENT
  Age: 38 Year
  Sex: Male

DRUGS (3)
  1. KALETRA [Suspect]
     Indication: HIV INFECTION
     Dates: start: 20011228
  2. EPIVIR [Concomitant]
     Indication: HIV INFECTION
  3. ZERIT [Concomitant]
     Indication: HIV INFECTION

REACTIONS (1)
  - Aortic valve stenosis [Recovered/Resolved]
